FAERS Safety Report 9112717 (Version 7)
Quarter: 2014Q2

REPORT INFORMATION
  Report Type: Spontaneous
  Country: US (occurrence: US)
  Receive Date: 20130211
  Receipt Date: 20140430
  Transmission Date: 20141212
  Serious: Yes (Hospitalization, Other)
  Sender: FDA-Public Use
  Company Number: US-009507513-1302USA004247

PATIENT
  Sex: Female
  Weight: 53.52 kg

DRUGS (11)
  1. FOSAMAX [Suspect]
     Indication: OSTEOPOROSIS
     Dosage: 70 MG, QW
     Route: 048
     Dates: start: 200303
  2. FOSAMAX [Suspect]
     Indication: OSTEOPENIA
     Dosage: UNK
     Dates: start: 201003, end: 201102
  3. FOSAMAX PLUS D [Suspect]
     Indication: OSTEOPOROSIS
     Dosage: 70 MG, QW2800
     Route: 048
     Dates: start: 200708, end: 200710
  4. FOSAMAX PLUS D [Suspect]
     Indication: OSTEOPENIA
     Dosage: 70 MG, QW, 1/2 TAB
     Route: 048
     Dates: start: 200802, end: 200910
  5. ALENDRONATE SODIUM [Suspect]
     Indication: OSTEOPOROSIS
     Dosage: 35 MG, QW, 1/2 TAB
     Route: 048
     Dates: start: 200910, end: 201102
  6. ALENDRONATE SODIUM [Suspect]
     Indication: OSTEOPENIA
     Dosage: UNK
     Dates: start: 200910, end: 201003
  7. VITAMINS (UNSPECIFIED) [Concomitant]
     Dosage: 1 DF, QD
     Route: 048
     Dates: start: 2000
  8. VIACTIV SOFT CALCIUM CHEWS [Concomitant]
     Dosage: 500-100-40 TAB, QD
     Route: 048
     Dates: start: 2000
  9. ASPIRIN [Concomitant]
     Dosage: 81 MG, 3 DAYS A WEEK
     Route: 048
  10. PRILOSEC [Concomitant]
     Dosage: 20 MG, 3 X WEEKLY
     Route: 048
  11. PREMARIN [Concomitant]
     Dosage: 0.3 MG, QD
     Route: 048

REACTIONS (19)
  - Intramedullary rod insertion [Unknown]
  - Cataract [Unknown]
  - Femur fracture [Unknown]
  - Medical device removal [Unknown]
  - Femur fracture [Recovered/Resolved]
  - Coeliac disease [Unknown]
  - Adverse event [Unknown]
  - Pain [Unknown]
  - Colitis microscopic [Unknown]
  - Cataract operation [Unknown]
  - Osteoarthritis [Unknown]
  - Anaemia [Unknown]
  - Cataract operation [Unknown]
  - Complication of device insertion [Unknown]
  - Fall [Unknown]
  - Loss of control of legs [Unknown]
  - Pain in extremity [Unknown]
  - Back pain [Unknown]
  - Arthralgia [Unknown]
